FAERS Safety Report 8062011-7 (Version None)
Quarter: 2012Q1

REPORT INFORMATION
  Report Type: 
  Country: None (occurrence: None)
  Receive Date: 20120117
  Receipt Date: 20111203
  Transmission Date: 20120608
  Serious: No
  Sender: FDA-Public Use
  Company Number: 2011-01322

PATIENT
  Age: 48 Year
  Sex: Male
  Weight: 104.3273 kg

DRUGS (2)
  1. LOTREL [Concomitant]
  2. ZICAM COLD REMEDY RAPIDMELTS CITRUS [Suspect]
     Dosage: COMMON COLD
     Dates: start: 20111203

REACTIONS (4)
  - DRY MOUTH [None]
  - PARAESTHESIA ORAL [None]
  - SWOLLEN TONGUE [None]
  - AGEUSIA [None]
